FAERS Safety Report 26092765 (Version 1)
Quarter: 2025Q4

REPORT INFORMATION
  Report Type: Spontaneous
  Country: US (occurrence: None)
  Receive Date: 20251126
  Receipt Date: 20251126
  Transmission Date: 20260118
  Serious: Yes (Death)
  Sender: FDA-CTU
  Company Number: None

PATIENT
  Age: 78 Year
  Sex: Female

DRUGS (11)
  1. ENTYVIO [Suspect]
     Active Substance: VEDOLIZUMAB
     Indication: Colitis ulcerative
     Dosage: FREQUENCY : EVERY OTHER WEEK;?
     Route: 058
     Dates: start: 20251009, end: 20251120
  2. VENLAFAXINE HYDROCHLORIDE [Concomitant]
     Active Substance: VENLAFAXINE HYDROCHLORIDE
  3. thyroid armour 0.5gr [Concomitant]
  4. oxycodone 10mg er [Concomitant]
  5. LISINOPRIL [Concomitant]
     Active Substance: LISINOPRIL
  6. ATENOLOL [Concomitant]
     Active Substance: ATENOLOL
  7. PREDNISONE [Concomitant]
     Active Substance: PREDNISONE
  8. MORPHINE [Concomitant]
     Active Substance: MORPHINE
  9. MEMANTINE [Concomitant]
     Active Substance: MEMANTINE
  10. LEVETIRACETAM [Concomitant]
     Active Substance: LEVETIRACETAM
  11. arformoterol 15mcg [Concomitant]

REACTIONS (1)
  - Neoplasm malignant [None]
